FAERS Safety Report 7822174-2 (Version None)
Quarter: 2011Q4

REPORT INFORMATION
  Report Type: 
  Country: None (occurrence: None)
  Receive Date: 20111018
  Receipt Date: 20101203
  Transmission Date: 20120403
  Serious: No
  Sender: FDA-Public Use
  Company Number: US-ASTRAZENECA-2009SE21582

PATIENT
  Age: 61 Year
  Sex: Female
  Weight: 56.7 kg

DRUGS (10)
  1. COMBIVENT [Concomitant]
     Indication: CHRONIC OBSTRUCTIVE PULMONARY DISEASE
  2. CELEXA [Concomitant]
     Indication: DEPRESSION
  3. SYNTHROID [Concomitant]
     Indication: HYPOTHYROIDISM
  4. SYMBICORT [Suspect]
     Indication: CHRONIC OBSTRUCTIVE PULMONARY DISEASE
     Dosage: 160/405 MCG TWO PUFFS BID
     Route: 055
     Dates: start: 20080101
  5. ALBUTEROL SULFATE [Concomitant]
     Indication: CHRONIC OBSTRUCTIVE PULMONARY DISEASE
  6. LYRICA [Concomitant]
     Indication: FIBROMYALGIA
  7. SPIRIVA [Concomitant]
     Indication: CHRONIC OBSTRUCTIVE PULMONARY DISEASE
  8. SINGULAIR [Concomitant]
  9. ALBUTEROL [Concomitant]
     Indication: CHRONIC OBSTRUCTIVE PULMONARY DISEASE
  10. WELLBUTRIN [Concomitant]
     Indication: DEPRESSION

REACTIONS (9)
  - DYSPNOEA [None]
  - ASTHENIA [None]
  - FATIGUE [None]
  - SINUSITIS [None]
  - OXYGEN SUPPLEMENTATION [None]
  - DRUG DOSE OMISSION [None]
  - FLUSHING [None]
  - TACHYCARDIA [None]
  - PANIC ATTACK [None]
